FAERS Safety Report 8373478-9 (Version None)
Quarter: 2012Q2

REPORT INFORMATION
  Report Type: 
  Country: None (occurrence: None)
  Receive Date: 20120521
  Receipt Date: 20110824
  Transmission Date: 20120825
  Serious: No
  Sender: FDA-Public Use
  Company Number: US-TEVA-2011003250

PATIENT
  Sex: Male
  Weight: 77.634 kg

DRUGS (3)
  1. ALLOPURINOL [Suspect]
  2. TREANDA [Suspect]
     Indication: LYMPHOMA
     Route: 042
     Dates: start: 20110223, end: 20110603
  3. RITUXAN [Concomitant]
     Dates: start: 20110224

REACTIONS (1)
  - RASH [None]
